FAERS Safety Report 15770698 (Version 3)
Quarter: 2019Q1

REPORT INFORMATION
  Report Type: Spontaneous
  Country: JP (occurrence: JP)
  Receive Date: 20181228
  Receipt Date: 20190117
  Transmission Date: 20190417
  Serious: Yes (Other)
  Sender: FDA-Public Use
  Company Number: JP-MYLANLABS-2018M1095714

PATIENT
  Sex: Female

DRUGS (7)
  1. DIGOXIN. [Interacting]
     Active Substance: DIGOXIN
     Dosage: 0.5 MILLIGRAM, QD
     Route: 048
  2. FUROSEMIDE. [Interacting]
     Active Substance: FUROSEMIDE
     Indication: OEDEMA
     Route: 065
  3. DIGOXIN. [Interacting]
     Active Substance: DIGOXIN
     Dosage: 0.75 MILLIGRAM, QD
     Route: 048
  4. DIGOXIN. [Interacting]
     Active Substance: DIGOXIN
     Indication: PRODUCT USED FOR UNKNOWN INDICATION
     Dosage: 1 MILLIGRAM, QD
     Route: 048
  5. ERYTHROMYCIN. [Suspect]
     Active Substance: ERYTHROMYCIN
     Indication: VULVOVAGINAL CANDIDIASIS
     Route: 065
  6. DIGOXIN. [Interacting]
     Active Substance: DIGOXIN
     Dosage: 1 MILLIGRAM, QD
     Route: 048
  7. DIGOXIN. [Interacting]
     Active Substance: DIGOXIN
     Dosage: 1 MILLIGRAM, QD
     Route: 048

REACTIONS (4)
  - Maternal exposure during pregnancy [Unknown]
  - Drug interaction [Unknown]
  - Caesarean section [Unknown]
  - Drug level increased [Unknown]
